FAERS Safety Report 6252152-9 (Version None)
Quarter: 2009Q2

REPORT INFORMATION
  Report Type: 
  Country: None (occurrence: None)
  Receive Date: 20090630
  Receipt Date: 20061121
  Transmission Date: 20091009
  Serious: Yes (Death, Hospitalization)
  Sender: FDA-Public Use
  Company Number: US-ROCHE-639254

PATIENT
  Sex: Female

DRUGS (20)
  1. ENFUVIRTIDE [Suspect]
     Route: 065
     Dates: start: 20040426, end: 20060601
  2. ENFUVIRTIDE [Suspect]
     Route: 065
     Dates: start: 20060901, end: 20070816
  3. EPIVIR [Concomitant]
     Dosage: FREQUENCY REPORTED AS QD
     Dates: start: 20021024, end: 20040830
  4. EPIVIR [Concomitant]
     Dosage: FREQUENCY REPORTED AS QD
     Dates: start: 20060728, end: 20070816
  5. ZERIT [Concomitant]
     Dosage: FREQUENCY REPORTED AS QD
     Dates: start: 20021024, end: 20040830
  6. NORVIR [Concomitant]
     Dosage: FREQUENCY REPORTED AS QD
     Dates: start: 20040426, end: 20040514
  7. REYATAZ [Concomitant]
     Dosage: FREQUENCY REPORTED AS QD
     Dates: start: 20040426, end: 20050909
  8. INVIRASE [Concomitant]
     Dates: start: 20040602
  9. INVIRASE [Concomitant]
     Dosage: FREQUENCY REPORTED AS QD
     Dates: end: 20050121
  10. INVIRASE [Concomitant]
     Dosage: FREQUENCY REPORTED AS QD
     Dates: start: 20050121, end: 20050909
  11. INVIRASE [Concomitant]
     Dosage: FREQUENCY REPORTED AS QD
     Dates: start: 20050909, end: 20060701
  12. ACYCLOVIR [Concomitant]
     Dates: start: 20040514, end: 20040101
  13. SPORANOX [Concomitant]
     Dosage: FREQUENCY REPORTED AS QD
     Dates: start: 20040602, end: 20040101
  14. MEPRON [Concomitant]
     Dosage: FREQUENCY REPORTED AS QD
     Dates: start: 20040602, end: 20040830
  15. MEPRON [Concomitant]
     Dates: start: 20050909, end: 20070904
  16. KALETRA [Concomitant]
     Dates: start: 20050909, end: 20070706
  17. DIFLUCAN [Concomitant]
     Dosage: FREQUENCY REPORTED AS QD
     Dates: start: 20050912, end: 20051001
  18. DIFLUCAN [Concomitant]
     Dosage: FREQUENCY REPORTED AS QD
     Dates: start: 20060629, end: 20060704
  19. DIFLUCAN [Concomitant]
     Dosage: FREQUENCY REPORTED AS QD
     Dates: start: 20060704, end: 20070904
  20. DOXYCYCLINE [Concomitant]
     Dates: start: 20060728, end: 20060810

REACTIONS (5)
  - FEBRILE NEUTROPENIA [None]
  - HEPATITIS C [None]
  - NEUTROPENIA [None]
  - NON-HODGKIN'S LYMPHOMA [None]
  - PANCYTOPENIA [None]
